FAERS Safety Report 14608199 (Version 2)
Quarter: 2018Q2

REPORT INFORMATION
  Report Type: Spontaneous
  Country: NO (occurrence: NO)
  Receive Date: 20180307
  Receipt Date: 20180613
  Transmission Date: 20180711
  Serious: Yes (Life-Threatening, Hospitalization, Other)
  Sender: FDA-Public Use
  Company Number: NO-009507513-1803NOR000231

PATIENT
  Age: 70 Year
  Sex: Female

DRUGS (1)
  1. PEMBROLIZUMAB. [Suspect]
     Active Substance: PEMBROLIZUMAB
     Indication: LUNG CARCINOMA CELL TYPE UNSPECIFIED STAGE IV
     Dosage: UNK, 8 TREATMENTS BEFORE REACTION OCCURRED
     Dates: start: 20170808, end: 20180109

REACTIONS (7)
  - Hepatitis [Recovering/Resolving]
  - Pericarditis [Recovering/Resolving]
  - Dehydration [Unknown]
  - Multiple organ dysfunction syndrome [Recovering/Resolving]
  - Renal failure [Recovering/Resolving]
  - Malignant neoplasm progression [Unknown]
  - Nephritis [Recovering/Resolving]

NARRATIVE: CASE EVENT DATE: 20180108
